FAERS Safety Report 19829269 (Version 1)
Quarter: 2021Q3

REPORT INFORMATION
  Report Type: Spontaneous
  Country: GB (occurrence: GB)
  Receive Date: 20210914
  Receipt Date: 20210914
  Transmission Date: 20211014
  Serious: Yes (Hospitalization, Other)
  Sender: FDA-Public Use
  Company Number: GB-MYLANLABS-2021M1061000

PATIENT
  Age: 23 Year
  Sex: Female
  Weight: 58.51 kg

DRUGS (4)
  1. XENIDATE XL [Concomitant]
     Active Substance: METHYLPHENIDATE HYDROCHLORIDE
     Dosage: UNK
  2. CO?DYDRAMOL [Concomitant]
     Active Substance: ACETAMINOPHEN\DIHYDROCODEINE
     Dosage: UNK
  3. SERTRALINE [Suspect]
     Active Substance: SERTRALINE HYDROCHLORIDE
     Indication: ANXIETY
     Dosage: 50 MILLIGRAM
     Route: 048
     Dates: start: 2020, end: 202108
  4. SERTRALINE [Suspect]
     Active Substance: SERTRALINE HYDROCHLORIDE
     Indication: CHEST PAIN
     Dosage: 25 MILLIGRAM
     Route: 048

REACTIONS (7)
  - Body temperature increased [Unknown]
  - Dizziness [Unknown]
  - Migraine [Unknown]
  - Withdrawal syndrome [Not Recovered/Not Resolved]
  - Illness [Unknown]
  - Hyperhidrosis [Unknown]
  - Palpitations [Unknown]
